FAERS Safety Report 5934448-0 (Version None)
Quarter: 2008Q4

REPORT INFORMATION
  Report Type: 
  Country: None (occurrence: None)
  Receive Date: 20081029
  Receipt Date: 20081015
  Transmission Date: 20090506
  Serious: Yes (Other)
  Sender: FDA-Public Use
  Company Number: BR-ELI_LILLY_AND_COMPANY-BR200810003834

PATIENT
  Sex: Male

DRUGS (1)
  1. ZYPREXA [Suspect]
     Dosage: UNK, UNKNOWN
     Route: 065

REACTIONS (7)
  - AMNESIA [None]
  - FEAR [None]
  - HALLUCINATION, VISUAL [None]
  - OVERDOSE [None]
  - PSYCHOTIC BEHAVIOUR [None]
  - PSYCHOTIC DISORDER [None]
  - SELF INJURIOUS BEHAVIOUR [None]
